FAERS Safety Report 13792684 (Version 1)
Quarter: 2017Q3

REPORT INFORMATION
  Report Type: Report from Study
  Country: IT (occurrence: IT)
  Receive Date: 20170725
  Receipt Date: 20170725
  Transmission Date: 20171127
  Serious: Yes (Other)
  Sender: FDA-Public Use
  Company Number: IT-MYLANLABS-2017M1045155

PATIENT

DRUGS (1)
  1. BRUFEN 600 MG COMPRESSE RIVESTITE [Suspect]
     Active Substance: IBUPROFEN
     Indication: PRODUCT USED FOR UNKNOWN INDICATION
     Dosage: 10 DF TOTAL
     Route: 048
     Dates: start: 20170327

REACTIONS (4)
  - Vomiting [Recovering/Resolving]
  - Drug abuse [Unknown]
  - Intentional overdose [Recovering/Resolving]
  - Catatonia [Recovering/Resolving]

NARRATIVE: CASE EVENT DATE: 20170327
